FAERS Safety Report 24686976 (Version 1)
Quarter: 2024Q4

REPORT INFORMATION
  Report Type: Spontaneous
  Country: US (occurrence: US)
  Receive Date: 20241202
  Receipt Date: 20241202
  Transmission Date: 20250114
  Serious: Yes (Hospitalization)
  Sender: BIOMARIN
  Company Number: US-SA-2024SA339946

PATIENT

DRUGS (1)
  1. LARONIDASE [Suspect]
     Active Substance: LARONIDASE
     Indication: Mucopolysaccharidosis I
     Dosage: 26.1 (UNITS NOT PROVIDED)
     Route: 042
     Dates: start: 20160504

REACTIONS (1)
  - Spinal deformity [Recovering/Resolving]

NARRATIVE: CASE EVENT DATE: 20241101
